FAERS Safety Report 4602489-1 (Version None)
Quarter: 2005Q1

REPORT INFORMATION
  Report Type: 
  Country: None (occurrence: None)
  Receive Date: 20050307
  Receipt Date: 20050120
  Transmission Date: 20050727
  Serious: Yes (Death, Other)
  Sender: FDA-Public Use
  Company Number: 2004094486

PATIENT
  Age: 78 Year
  Sex: Female

DRUGS (32)
  1. CELEBREX [Suspect]
     Indication: ARTHRALGIA
     Dosage: 200 MG (200 MG, 1 D), ORAL
     Route: 048
     Dates: start: 19991026
  2. ASPIRIN [Concomitant]
  3. AMLODIPINE BESYLATE [Concomitant]
  4. KARVEA HCT (HYDROCHLOROTHIAZIDE, IRBESARTAN) [Concomitant]
  5. MAGNESIUM OXIDE (MAGNESIUM OXIDE) [Concomitant]
  6. LANSOPRAZOLE [Concomitant]
  7. NISOLDIPINE (NISOLDIPINE) [Concomitant]
  8. LOSARTAN POTASSIUM [Concomitant]
  9. PANTOPRAZOLE (PANTOPRAZOLE) [Concomitant]
  10. ZINC GLUCONATE (ZINC GLUCONATE) [Concomitant]
  11. CLONIDINE HCL [Concomitant]
  12. QUININE SULFATE (QUININE SULFATE) [Concomitant]
  13. CALCIUM (CALCIUM) [Concomitant]
  14. GLYCERIN/HYDROXYPROPYLMETHYLCELLU/POLYETHGLYC (GLYCEROL, MACROGOL, MET [Concomitant]
  15. CALCITONIN, SALMON (CALCITONIN, SALMON) [Concomitant]
  16. MULTIVITAMINS (ASCORBIC ACID, ERGOCALCIFEROL, FOLIC ACID, NICOTINAMIDE [Concomitant]
  17. TOCOPHEROL (TOCOPHEROL) [Concomitant]
  18. LEVOTHYROXINE SODIUM [Concomitant]
  19. GLIMEPIRIDE [Concomitant]
  20. VALDECOXIB [Concomitant]
  21. PROPACET 100 [Concomitant]
  22. TRAMADOL HYDROCHORIDE (TRAMADOL HYDROCHLORIDE) [Concomitant]
  23. LORAZEPAM [Concomitant]
  24. METFORMIN HCL [Concomitant]
  25. ZAFIRLUKAST (ZAFIRLUKAST) [Concomitant]
  26. HYDROXYZINE HCL [Concomitant]
  27. PROMETHAZINE [Concomitant]
  28. TEARS PLUS (POLYVIDONE, POLYVINYL ALCOHOL) [Concomitant]
  29. ERYTHROMYCIN [Concomitant]
  30. TERBINAFINE HCL [Concomitant]
  31. MUPIROCIN (MUPIROCIN) [Concomitant]
  32. GABAPENTIN [Concomitant]

REACTIONS (7)
  - CARDIO-RESPIRATORY ARREST [None]
  - DIABETIC NEUROPATHY [None]
  - DYSARTHRIA [None]
  - FALL [None]
  - NEUROPATHY PERIPHERAL [None]
  - POOR PERIPHERAL CIRCULATION [None]
  - TRANSIENT ISCHAEMIC ATTACK [None]
